FAERS Safety Report 12493638 (Version 3)
Quarter: 2016Q4

REPORT INFORMATION
  Report Type: Spontaneous
  Country: US (occurrence: US)
  Receive Date: 20160623
  Receipt Date: 20161116
  Transmission Date: 20170207
  Serious: No
  Sender: FDA-Public Use
  Company Number: US-GLAXOSMITHKLINE-US2016088078

PATIENT
  Age: 64 Year
  Sex: Female

DRUGS (2)
  1. TRANSDERM SCOP [Suspect]
     Active Substance: SCOPOLAMINE
     Indication: MOTION SICKNESS
  2. TRANSDERM SCOP [Suspect]
     Active Substance: SCOPOLAMINE
     Indication: NAUSEA
     Dosage: UNK
     Route: 062
     Dates: start: 201601, end: 201605

REACTIONS (4)
  - Drug ineffective [Unknown]
  - Headache [Recovered/Resolved with Sequelae]
  - Product quality issue [Unknown]
  - Dry mouth [Recovered/Resolved with Sequelae]
